FAERS Safety Report 25953708 (Version 1)
Quarter: 2025Q4

REPORT INFORMATION
  Report Type: Spontaneous
  Country: US (occurrence: None)
  Receive Date: 20251023
  Receipt Date: 20251023
  Transmission Date: 20260117
  Serious: Yes (Hospitalization)
  Sender: FDA-CTU
  Company Number: None

PATIENT
  Sex: Male

DRUGS (1)
  1. STELARA [Suspect]
     Active Substance: USTEKINUMAB
     Indication: Inflammatory bowel disease
     Dosage: 90 MG EVERY 8 WEEKS SUBCUTNEOUS
     Route: 058
     Dates: start: 20250128

REACTIONS (4)
  - Rectal abscess [None]
  - Disease recurrence [None]
  - Sepsis [None]
  - Therapy change [None]
